FAERS Safety Report 4504712-0 (Version None)
Quarter: 2004Q3

REPORT INFORMATION
  Report Type: 
  Country: None (occurrence: None)
  Receive Date: 20040927
  Receipt Date: 20040713
  Transmission Date: 20050211
  Serious: No
  Sender: FDA-Public Use
  Company Number: USA040772493

PATIENT
  Age: 13 Year
  Sex: Male
  Weight: 64 kg

DRUGS (1)
  1. STRATTERA [Suspect]
     Indication: ATTENTION DEFICIT/HYPERACTIVITY DISORDER
     Dosage: 40 MG/1 DAY
     Dates: start: 20040602

REACTIONS (4)
  - EYE REDNESS [None]
  - EYE SWELLING [None]
  - HYPERSENSITIVITY [None]
  - RHINORRHOEA [None]
